FAERS Safety Report 15939003 (Version 1)
Quarter: 2019Q1

REPORT INFORMATION
  Report Type: Spontaneous
  Country: NO (occurrence: NO)
  Receive Date: 20190208
  Receipt Date: 20190208
  Transmission Date: 20190417
  Serious: Yes (Hospitalization)
  Sender: FDA-Public Use
  Company Number: NO-JNJFOC-20190140659

PATIENT
  Age: 34 Year
  Sex: Male

DRUGS (2)
  1. REMICADE [Suspect]
     Active Substance: INFLIXIMAB
     Indication: AXIAL SPONDYLOARTHRITIS
     Route: 042
     Dates: start: 2000
  2. CANDESARTAN KRKA [Concomitant]
     Active Substance: CANDESARTAN
     Route: 048

REACTIONS (7)
  - Abdominal pain [Recovering/Resolving]
  - Henoch-Schonlein purpura [Recovering/Resolving]
  - Diarrhoea haemorrhagic [Recovering/Resolving]
  - Proteinuria [Recovering/Resolving]
  - Rash [Recovering/Resolving]
  - Product use issue [Unknown]
  - Off label use [Unknown]

NARRATIVE: CASE EVENT DATE: 2000
